FAERS Safety Report 7072551-5 (Version None)
Quarter: 2010Q4

REPORT INFORMATION
  Report Type: 
  Country: None (occurrence: None)
  Receive Date: 20101029
  Receipt Date: 20100209
  Transmission Date: 20110411
  Serious: No
  Sender: FDA-Public Use
  Company Number: A0843770A

PATIENT
  Sex: Female

DRUGS (4)
  1. ADVAIR DISKUS 100/50 [Suspect]
     Indication: ASTHMA
     Dosage: 1PUFF TWICE PER DAY
     Route: 055
  2. NEBULIZER [Concomitant]
  3. ALBUTEROL [Concomitant]
  4. THYROID MEDICATION [Concomitant]

REACTIONS (1)
  - HEART RATE INCREASED [None]
